FAERS Safety Report 8991305 (Version 1)
Quarter: 2012Q4

REPORT INFORMATION
  Report Type: Report from Study
  Country: US (occurrence: US)
  Receive Date: 20121231
  Receipt Date: 20121231
  Transmission Date: 20130627
  Serious: Yes (Other)
  Sender: FDA-Public Use
  Company Number: US-ROCHE-1173948

PATIENT
  Sex: Female

DRUGS (1)
  1. OMALIZUMAB [Suspect]
     Indication: PRODUCT USED FOR UNKNOWN INDICATION
     Route: 065
     Dates: end: 20081222

REACTIONS (7)
  - Asthma [Unknown]
  - Drug ineffective [Unknown]
  - Chronic obstructive pulmonary disease [Unknown]
  - Leukaemia [Unknown]
  - Fatigue [Unknown]
  - Blood cholesterol increased [Unknown]
  - Cardiac disorder [Unknown]
